FAERS Safety Report 5373998-5 (Version None)
Quarter: 2007Q2

REPORT INFORMATION
  Report Type: 
  Country: None (occurrence: None)
  Receive Date: 20070628
  Receipt Date: 20070625
  Transmission Date: 20071010
  Serious: Yes (Hospitalization)
  Sender: FDA-Public Use
  Company Number: JP-MERCK-0705USA05292

PATIENT
  Age: 55 Year
  Sex: Male

DRUGS (4)
  1. PEPCID RPD [Suspect]
     Indication: PROPHYLAXIS AGAINST GASTROINTESTINAL ULCER
     Route: 048
     Dates: start: 20070228, end: 20070502
  2. DEPAKENE [Suspect]
     Indication: CONVULSION PROPHYLAXIS
     Route: 065
     Dates: start: 20070228, end: 20070502
  3. AMLODIN [Concomitant]
     Indication: HYPERTENSION
     Route: 065
     Dates: start: 20070228, end: 20070502
  4. OLMETEC [Concomitant]
     Indication: HYPERTENSION
     Route: 065
     Dates: start: 20070228, end: 20070502

REACTIONS (1)
  - LIVER DISORDER [None]
